FAERS Safety Report 25432276 (Version 2)
Quarter: 2025Q4

REPORT INFORMATION
  Report Type: Spontaneous
  Country: US (occurrence: US)
  Receive Date: 20250613
  Receipt Date: 20251110
  Transmission Date: 20260118
  Serious: Yes (Other)
  Sender: COOPERSURGICAL
  Company Number: US-COOPERSURGICAL, INC.-2025CPS004719

PATIENT
  Age: 22 Year
  Sex: Female
  Weight: 72.109 kg

DRUGS (2)
  1. PARAGARD T 380A [Suspect]
     Active Substance: COPPER
     Indication: Contraception
     Dosage: UNK
     Route: 015
     Dates: start: 20060301, end: 20190121
  2. ALBUTEROL [Concomitant]
     Active Substance: ALBUTEROL
     Dosage: UNK

REACTIONS (22)
  - Abortion induced [Recovered/Resolved]
  - Surgery [Recovered/Resolved]
  - Reproductive complication associated with device [Unknown]
  - Device breakage [Recovered/Resolved]
  - Foreign body in reproductive tract [Recovered/Resolved]
  - Complication of device removal [Recovered/Resolved]
  - Embedded device [Recovered/Resolved]
  - Nervous system disorder [Unknown]
  - Blood copper increased [Unknown]
  - Depression [Unknown]
  - Premenstrual pain [Unknown]
  - Dysgeusia [Unknown]
  - Pelvic discomfort [Unknown]
  - Adnexa uteri pain [Unknown]
  - Procedural haemorrhage [Recovered/Resolved]
  - Complication associated with device [Recovered/Resolved]
  - Heavy menstrual bleeding [Not Recovered/Not Resolved]
  - Device dislocation [Recovered/Resolved]
  - Abnormal uterine bleeding [Unknown]
  - Pelvic pain [Unknown]
  - Vaginal infection [Unknown]
  - Pain [Recovered/Resolved]

NARRATIVE: CASE EVENT DATE: 20060301
